FAERS Safety Report 8935585 (Version 1)
Quarter: 2012Q4

REPORT INFORMATION
  Report Type: 
  Country: MX (occurrence: MX)
  Receive Date: 20121130
  Receipt Date: 20121130
  Transmission Date: 20130627
  Serious: Yes (Hospitalization, Other)
  Sender: FDA-Public Use
  Company Number: PHHY2012MX109462

PATIENT
  Age: 80 Year
  Sex: Female

DRUGS (1)
  1. EXELON [Suspect]
     Indication: DEMENTIA ALZHEIMER^S TYPE
     Dosage: 5cm2/4.6 mg
     Route: 062
     Dates: start: 201203, end: 20121029

REACTIONS (6)
  - Encephalopathy [Recovered/Resolved]
  - Hyponatraemia [Recovered/Resolved]
  - Urinary tract infection [Recovered/Resolved]
  - Mental disorder [Unknown]
  - Feeling abnormal [Unknown]
  - Abnormal behaviour [Unknown]
